FAERS Safety Report 5267823-0 (Version None)
Quarter: 2007Q1

REPORT INFORMATION
  Report Type: 
  Country: None (occurrence: None)
  Receive Date: 20070316
  Receipt Date: 20070306
  Transmission Date: 20070707
  Serious: Yes (Other)
  Sender: FDA-Public Use
  Company Number: US-PFIZER INC-2007018357

PATIENT
  Sex: Male
  Weight: 77.1 kg

DRUGS (7)
  1. LYRICA [Suspect]
     Indication: PAIN
  2. WARFARIN SODIUM [Concomitant]
  3. TOPROL-XL [Concomitant]
  4. LISINOPRIL [Concomitant]
  5. PROTONIX [Concomitant]
  6. MULTI-VITAMINS [Concomitant]
  7. ACETYLSALICYLIC ACID SRT [Concomitant]

REACTIONS (1)
  - PAIN [None]
